FAERS Safety Report 4966979-4 (Version None)
Quarter: 2006Q2

REPORT INFORMATION
  Report Type: 
  Country: None (occurrence: None)
  Receive Date: 20060403
  Receipt Date: 20060323
  Transmission Date: 20061013
  Serious: Yes (Hospitalization)
  Sender: FDA-Public Use
  Company Number: 2006041363

PATIENT
  Age: 76 Year
  Sex: Female
  Weight: 63.5036 kg

DRUGS (4)
  1. ALDACTONE [Suspect]
     Indication: CARDIAC FAILURE CONGESTIVE
     Dosage: 25 MG 25 MG, DAILY
  2. VASOTEC [Suspect]
     Indication: CARDIAC FAILURE CONGESTIVE
     Dosage: 5 MG (2.5 MG, 1 IN 1 12 HR)
     Dates: end: 20060201
  3. DULCOLAX [Suspect]
     Indication: COLONOSCOPY
     Dosage: 4 TABLETS DAILY
     Dates: start: 20060201
  4. DIGOXIN [Suspect]
     Indication: CARDIAC FAILURE CONGESTIVE
     Dosage: 0.25 MG (0.25 MG, DAILY)

REACTIONS (9)
  - ASTHENIA [None]
  - EYE SWELLING [None]
  - HEADACHE [None]
  - HYPERHIDROSIS [None]
  - HYPOTENSION [None]
  - OEDEMA PERIPHERAL [None]
  - SYNCOPE [None]
  - VIRAL INFECTION [None]
  - WEIGHT INCREASED [None]
